FAERS Safety Report 8615377-0 (Version None)
Quarter: 2012Q3

REPORT INFORMATION
  Report Type: 
  Country: None (occurrence: None)
  Receive Date: 20120823
  Receipt Date: 20120810
  Transmission Date: 20120928
  Serious: Yes (Other)
  Sender: FDA-Public Use
  Company Number: GB-INCYTE CORPORATION-2012IN001556

PATIENT
  Sex: Male

DRUGS (3)
  1. PREDNISONE TAB [Concomitant]
     Dosage: UNK
     Dates: start: 20110517
  2. INC424 [Suspect]
     Indication: MYELOFIBROSIS
  3. THALIDOMIDE [Concomitant]
     Dosage: UNK
     Dates: start: 20110517, end: 20110802

REACTIONS (1)
  - DIARRHOEA [None]
